FAERS Safety Report 8764675 (Version 2)
Quarter: 2013Q3

REPORT INFORMATION
  Report Type: Report from Study
  Country: US (occurrence: US)
  Receive Date: 20120828
  Receipt Date: 20130826
  Transmission Date: 20140515
  Serious: Yes (Hospitalization, Other)
  Sender: FDA-Public Use
  Company Number: US-ELI_LILLY_AND_COMPANY-US201207006451

PATIENT
  Age: 70 Year
  Sex: Female

DRUGS (1)
  1. TERIPARATIDE [Suspect]
     Indication: OSTEOPOROSIS
     Dosage: 20 UG, QD
     Route: 058
     Dates: start: 201205, end: 201207

REACTIONS (6)
  - Loss of consciousness [Unknown]
  - Foot fracture [Unknown]
  - Fall [Unknown]
  - Head injury [Unknown]
  - Nodule [Unknown]
  - Injection site nodule [Unknown]
